FAERS Safety Report 13106861 (Version 1)
Quarter: 2017Q1

REPORT INFORMATION
  Report Type: Spontaneous
  Country: DE (occurrence: DE)
  Receive Date: 20170111
  Receipt Date: 20170111
  Transmission Date: 20170428
  Serious: Yes (Death, Hospitalization, Other)
  Sender: FDA-Public Use
  Company Number: DE-GILEAD-2017-0252605

PATIENT
  Sex: Male

DRUGS (4)
  1. EPCLUSA [Suspect]
     Active Substance: SOFOSBUVIR\VELPATASVIR
     Indication: CHRONIC HEPATITIS C
     Dosage: UNK
     Route: 048
     Dates: start: 20161011
  2. LYRICA [Concomitant]
     Active Substance: PREGABALIN
  3. RIBAVIRIN. [Concomitant]
     Active Substance: RIBAVIRIN
     Indication: CHRONIC HEPATITIS C
     Dosage: UNK
     Route: 048
     Dates: start: 20161011
  4. DOLOPHINE [Concomitant]
     Active Substance: METHADONE HYDROCHLORIDE
     Indication: SUBSTANCE DEPENDENCE
     Dosage: 18 MG, UNK
     Route: 048
     Dates: start: 2013

REACTIONS (9)
  - Hypovolaemia [Unknown]
  - Hypoglycaemia [Unknown]
  - Multiple organ dysfunction syndrome [Fatal]
  - Metabolic acidosis [Unknown]
  - Lactic acidosis [Fatal]
  - Intestinal ischaemia [Fatal]
  - Cardiac arrest [Unknown]
  - Haemoglobin decreased [Unknown]
  - Coagulopathy [Unknown]

NARRATIVE: CASE EVENT DATE: 20161210
